FAERS Safety Report 8427952-7 (Version None)
Quarter: 2012Q2

REPORT INFORMATION
  Report Type: 
  Country: None (occurrence: None)
  Receive Date: 20120611
  Receipt Date: 20120606
  Transmission Date: 20120825
  Serious: Yes (Hospitalization)
  Sender: FDA-Public Use
  Company Number: DE-B.I. PHARMACEUTICALS,INC./RIDGEFIELD-2012-DE-01430DE

PATIENT
  Age: 69 Year
  Sex: Male
  Weight: 80 kg

DRUGS (2)
  1. PRADAXA [Suspect]
     Indication: ATRIAL FIBRILLATION
  2. PRADAXA [Suspect]
     Indication: CEREBROVASCULAR ACCIDENT
     Dosage: 220 MG
     Dates: start: 20120501

REACTIONS (8)
  - URINARY TRACT INFECTION [None]
  - VOMITING [None]
  - PROTHROMBIN TIME [None]
  - PNEUMONIA [None]
  - INTERNATIONAL NORMALISED RATIO [None]
  - NAUSEA [None]
  - ACTIVATED PARTIAL THROMBOPLASTIN TIME [None]
  - PYREXIA [None]
